FAERS Safety Report 23737636 (Version 2)
Quarter: 2024Q2

REPORT INFORMATION
  Report Type: Spontaneous
  Country: CN (occurrence: CN)
  Receive Date: 20240412
  Receipt Date: 20240419
  Transmission Date: 20240716
  Serious: Yes (Life-Threatening, Hospitalization, Other)
  Sender: FDA-Public Use
  Company Number: CN-BAXTER-2024BAX016431

PATIENT
  Sex: Female

DRUGS (3)
  1. CYCLOPHOSPHAMIDE [Suspect]
     Active Substance: CYCLOPHOSPHAMIDE
     Indication: Diffuse large B-cell lymphoma stage II
     Dosage: EIGHT CYCLES OF COMBINED CHEMOTHERAPY CONTAINING TOPOISOMERASE-II INHIBITORS (DOXORUBICIN, ETOPOSIDE
     Route: 065
     Dates: start: 201910
  2. ETOPOSIDE [Suspect]
     Active Substance: ETOPOSIDE
     Indication: Diffuse large B-cell lymphoma stage II
     Dosage: EIGHT CYCLES OF COMBINED CHEMOTHERAPY CONTAINING TOPOISOMERASE-II INHIBITORS (DOXORUBICIN, ETOPOSIDE
     Route: 065
     Dates: start: 201910
  3. DOXORUBICIN [Suspect]
     Active Substance: DOXORUBICIN
     Indication: Diffuse large B-cell lymphoma stage II
     Dosage: EIGHT CYCLES OF COMBINED CHEMOTHERAPY CONTAINING TOPOISOMERASE-II INHIBITORS (DOXORUBICIN, ETOPOSIDE
     Route: 065
     Dates: start: 201910

REACTIONS (4)
  - Acute myeloid leukaemia [Recovered/Resolved]
  - Fatigue [Recovered/Resolved]
  - Ecchymosis [Recovered/Resolved]
  - Antineutrophil cytoplasmic antibody positive [Recovered/Resolved]

NARRATIVE: CASE EVENT DATE: 20220401
